FAERS Safety Report 10756044 (Version 1)
Quarter: 2015Q1

REPORT INFORMATION
  Report Type: Report from Study
  Country: JP (occurrence: JP)
  Receive Date: 20150202
  Receipt Date: 20150202
  Transmission Date: 20150721
  Serious: Yes (Death, Hospitalization)
  Sender: FDA-Public Use
  Company Number: JP-ELI_LILLY_AND_COMPANY-JP201409007448

PATIENT
  Age: 68 Year
  Sex: Male
  Weight: 68 kg

DRUGS (10)
  1. PANVITAN                           /05664201/ [Concomitant]
     Dosage: UNK
     Route: 048
     Dates: start: 20120921, end: 20130801
  2. METHYCOBAL [Concomitant]
     Active Substance: METHYLCOBALAMIN
     Dosage: UNK
     Route: 030
     Dates: start: 20120921, end: 20130401
  3. DIOVAN [Concomitant]
     Active Substance: VALSARTAN
     Dosage: UNK
     Route: 048
     Dates: start: 20121002
  4. BAYASPIRIN [Concomitant]
     Active Substance: ASPIRIN
     Dosage: UNK
     Route: 048
     Dates: start: 20121002
  5. GASTER [Concomitant]
     Active Substance: FAMOTIDINE
     Dosage: UNK
     Route: 048
     Dates: start: 20121002
  6. PARAPLATIN [Concomitant]
     Active Substance: CARBOPLATIN
     Dosage: 450 MG, OTHER
     Route: 042
     Dates: start: 20130131, end: 20130402
  7. NORVASC [Concomitant]
     Active Substance: AMLODIPINE BESYLATE
     Dosage: UNK
     Dates: start: 20121002
  8. PEMETREXED [Suspect]
     Active Substance: PEMETREXED
     Indication: LUNG ADENOCARCINOMA STAGE IV
     Dosage: 800 MG, OTHER
     Route: 042
     Dates: start: 20121002, end: 20121127
  9. PARAPLATIN [Concomitant]
     Active Substance: CARBOPLATIN
     Indication: LUNG ADENOCARCINOMA STAGE IV
     Dosage: 500 MG, OTHER
     Route: 042
     Dates: start: 20121002, end: 20121127
  10. PEMETREXED [Suspect]
     Active Substance: PEMETREXED
     Dosage: 700 MG, OTHER
     Route: 042
     Dates: start: 20130131, end: 20130527

REACTIONS (3)
  - Interstitial lung disease [Fatal]
  - Pneumonia [Recovered/Resolved]
  - Respiratory failure [Fatal]

NARRATIVE: CASE EVENT DATE: 20121227
